FAERS Safety Report 10148049 (Version 1)
Quarter: 2014Q2

REPORT INFORMATION
  Report Type: Spontaneous
  Country: US (occurrence: US)
  Receive Date: 20140501
  Receipt Date: 20140501
  Transmission Date: 20141212
  Serious: No
  Sender: FDA-Public Use
  Company Number: US-AMGEN-USASP2014026925

PATIENT
  Age: 58 Year
  Sex: Female

DRUGS (2)
  1. ENBREL [Suspect]
     Indication: RHEUMATOID ARTHRITIS
     Dosage: 50 MG, QWK
     Route: 065
     Dates: start: 20130930
  2. METHOTREXAT                        /00113801/ [Concomitant]
     Dosage: 6 TABLETS (UNKNOWN DOSAGE)
     Route: 048
     Dates: start: 2009

REACTIONS (3)
  - Pain [Recovered/Resolved]
  - Increased tendency to bruise [Not Recovered/Not Resolved]
  - Bronchitis [Recovered/Resolved]
